FAERS Safety Report 8318342-6 (Version None)
Quarter: 2012Q2

REPORT INFORMATION
  Report Type: 
  Country: None (occurrence: None)
  Receive Date: 20120427
  Receipt Date: 20120423
  Transmission Date: 20120825
  Serious: No
  Sender: FDA-Public Use
  Company Number: AU-JNJFOC-20101205558

PATIENT
  Sex: Female
  Weight: 74 kg

DRUGS (18)
  1. IBRUPROFEN [Concomitant]
     Route: 048
     Dates: start: 20080618
  2. NEXIUM [Concomitant]
     Route: 048
     Dates: start: 20081001
  3. IBUPROFEN [Concomitant]
     Route: 048
     Dates: start: 20090401
  4. METHOTREXATE [Suspect]
     Route: 048
     Dates: start: 20061021, end: 20071013
  5. DULOXETINE HYDROCHLORIDE [Concomitant]
     Route: 048
     Dates: start: 20100128
  6. FOLIC ACID [Concomitant]
     Route: 048
  7. IBRUPROFEN [Concomitant]
     Route: 048
     Dates: start: 20080313
  8. BACTRIM [Concomitant]
     Route: 061
     Dates: start: 20100427
  9. GOLIMUMAB [Suspect]
     Route: 058
     Dates: start: 20061020
  10. GOLIMUMAB [Suspect]
     Route: 058
     Dates: start: 20100917
  11. GOLIMUMAB [Suspect]
     Indication: RHEUMATOID ARTHRITIS
     Route: 058
     Dates: start: 20070921
  12. METHOTREXATE [Suspect]
     Indication: RHEUMATOID ARTHRITIS
     Route: 048
     Dates: start: 20060923, end: 20061014
  13. ACETAMINOPHEN [Concomitant]
     Route: 048
  14. IBRUPROFEN [Concomitant]
     Route: 048
     Dates: start: 20090516
  15. METHOTREXATE [Concomitant]
     Route: 048
     Dates: start: 20080628
  16. PREDNISOLONE [Concomitant]
     Route: 048
     Dates: start: 20100901
  17. MODURETIC 5-50 [Concomitant]
     Route: 048
     Dates: start: 20070825
  18. OSTEVIT-D [Concomitant]
     Route: 048
     Dates: start: 20080620

REACTIONS (1)
  - SQUAMOUS CELL CARCINOMA [None]
